FAERS Safety Report 23712129 (Version 1)
Quarter: 2024Q2

REPORT INFORMATION
  Report Type: Spontaneous
  Country: US (occurrence: None)
  Receive Date: 20240404
  Receipt Date: 20240404
  Transmission Date: 20240715
  Serious: Yes (Other)
  Sender: FDA-Public Use
  Company Number: None

PATIENT
  Age: 21 Year
  Sex: Female
  Weight: 88.45 kg

DRUGS (1)
  1. XEMBIFY [Suspect]
     Active Substance: HUMAN IMMUNOGLOBULIN G
     Indication: Immunodeficiency common variable
     Dosage: 9 G GRAM(S) WEEILY SUBCUTANEOUS?
     Route: 058
     Dates: start: 20240311, end: 20240401

REACTIONS (1)
  - Ophthalmic migraine [None]

NARRATIVE: CASE EVENT DATE: 20240319
